FAERS Safety Report 23970102 (Version 1)
Quarter: 2024Q2

REPORT INFORMATION
  Report Type: Report from Study
  Country: US (occurrence: US)
  Receive Date: 20240613
  Receipt Date: 20240613
  Transmission Date: 20240716
  Serious: Yes (Hospitalization)
  Sender: FDA-Public Use
  Company Number: US-AMGEN-USASP2024114188

PATIENT
  Age: 12 Year
  Sex: Female

DRUGS (5)
  1. CYSTEAMINE BITARTRATE [Suspect]
     Active Substance: CYSTEAMINE BITARTRATE
     Indication: Cystinosis
     Dosage: 450 MILLIGRAM, BID
     Route: 048
     Dates: start: 20200707, end: 20200721
  2. CYSTEAMINE BITARTRATE [Suspect]
     Active Substance: CYSTEAMINE BITARTRATE
     Dosage: 525 MILLIGRAM, BID
     Route: 048
     Dates: start: 20200722, end: 20200810
  3. CYSTEAMINE BITARTRATE [Suspect]
     Active Substance: CYSTEAMINE BITARTRATE
     Dosage: 600 MILLIGRAM, BID
     Route: 048
     Dates: start: 20200811, end: 20210507
  4. CYSTEAMINE BITARTRATE [Suspect]
     Active Substance: CYSTEAMINE BITARTRATE
     Dosage: 750 MILLIGRAM, BID
     Route: 048
     Dates: start: 20210508
  5. CYSTEAMINE BITARTRATE [Suspect]
     Active Substance: CYSTEAMINE BITARTRATE
     Dosage: UNK
     Route: 048

REACTIONS (1)
  - Seizure [Recovered/Resolved]

NARRATIVE: CASE EVENT DATE: 20240526
